FAERS Safety Report 8509291-9 (Version None)
Quarter: 2012Q3

REPORT INFORMATION
  Report Type: 
  Country: None (occurrence: None)
  Receive Date: 20120713
  Receipt Date: 20120705
  Transmission Date: 20120928
  Serious: Yes (Other)
  Sender: FDA-Public Use
  Company Number: US-CELGENEUS-163-21880-12041906

PATIENT
  Sex: Female
  Weight: 68.9 kg

DRUGS (2)
  1. PREDNISONE [Concomitant]
     Dosage: 5 MILLIGRAM
     Route: 048
     Dates: start: 20110920
  2. REVLIMID [Suspect]
     Dosage: 5 MILLIGRAM
     Route: 048
     Dates: start: 20110921, end: 20120113

REACTIONS (3)
  - CHEST PAIN [None]
  - DIARRHOEA [None]
  - DILATATION VENTRICULAR [None]
